FAERS Safety Report 5587214-2 (Version None)
Quarter: 2008Q1

REPORT INFORMATION
  Report Type: 
  Country: None (occurrence: None)
  Receive Date: 20080110
  Receipt Date: 20070531
  Transmission Date: 20080703
  Serious: No
  Sender: FDA-Public Use
  Company Number: US-BRISTOL-MYERS SQUIBB COMPANY-13798483

PATIENT

DRUGS (2)
  1. CARDIOLITE [Suspect]
     Indication: BLOOD CHOLESTEROL INCREASED
  2. CRESTOR [Concomitant]

REACTIONS (1)
  - ACCIDENTAL EXPOSURE [None]
